FAERS Safety Report 6064454-X (Version None)
Quarter: 2009Q1

REPORT INFORMATION
  Report Type: 
  Country: None (occurrence: None)
  Receive Date: 20090203
  Receipt Date: 20090203
  Transmission Date: 20090719
  Serious: Yes (Other)
  Sender: FDA-Public Use
  Company Number: None

PATIENT
  Sex: Female
  Weight: 56.3 kg

DRUGS (5)
  1. REMICADE [Suspect]
     Indication: ANKYLOSING SPONDYLITIS
     Dosage: 5 - 8MG/KG Q8 -Q 4 WEEKS IV
     Route: 042
     Dates: start: 20020701, end: 20051201
  2. REMICADE [Suspect]
     Indication: CROHN'S DISEASE
     Dosage: 5 - 8MG/KG Q8 -Q 4 WEEKS IV
     Route: 042
     Dates: start: 20020701, end: 20051201
  3. HUMIRA [Suspect]
     Indication: ANKYLOSING SPONDYLITIS
     Dosage: 40MG QOWEEK SQ
     Route: 058
     Dates: start: 20060401, end: 20080101
  4. HUMIRA [Suspect]
     Indication: CROHN'S DISEASE
     Dosage: 40MG QOWEEK SQ
     Route: 058
     Dates: start: 20060401, end: 20080101
  5. 6 MERCAPTOPURINE 50 [Concomitant]

REACTIONS (4)
  - BLEPHAROSPASM [None]
  - MENINGIOMA [None]
  - MUSCLE TWITCHING [None]
  - TINNITUS [None]
